FAERS Safety Report 6852578-6 (Version None)
Quarter: 2010Q3

REPORT INFORMATION
  Report Type: 
  Country: None (occurrence: None)
  Receive Date: 20100717
  Receipt Date: 20071118
  Transmission Date: 20110219
  Serious: No
  Sender: FDA-Public Use
  Company Number: US-PFIZER INC-2007099212

PATIENT
  Sex: Female
  Weight: 59.1 kg

DRUGS (5)
  1. CHANTIX [Suspect]
     Indication: SMOKING CESSATION THERAPY
     Route: 048
     Dates: start: 20071101
  2. PREMARIN [Concomitant]
  3. FOSAMAX [Concomitant]
  4. XANAX [Concomitant]
  5. VICODIN [Concomitant]
     Indication: BACK PAIN

REACTIONS (1)
  - SLEEP DISORDER [None]
